FAERS Safety Report 9735743 (Version 1)
Quarter: 2013Q4

REPORT INFORMATION
  Report Type: Spontaneous
  Country: US (occurrence: US)
  Receive Date: 20131206
  Receipt Date: 20131206
  Transmission Date: 20140711
  Serious: No
  Sender: FDA-Public Use
  Company Number: US-GILEAD-2009-0022609

PATIENT
  Sex: Female
  Weight: 99.79 kg

DRUGS (11)
  1. LETAIRIS [Suspect]
     Indication: PULMONARY ARTERIAL HYPERTENSION
     Route: 048
     Dates: start: 20080806
  2. ASPIRIN LOW DOSE [Concomitant]
  3. LASIX [Concomitant]
  4. FOLIC ACID [Concomitant]
  5. EVISTA [Concomitant]
  6. METHOTREXATE [Concomitant]
  7. PEPCID [Concomitant]
  8. PAXIL CR [Concomitant]
  9. TOPAMAX [Concomitant]
  10. ACIPHEX [Concomitant]
  11. AVANDIA [Concomitant]

REACTIONS (2)
  - Pain in extremity [Unknown]
  - Oedema peripheral [Unknown]
